FAERS Safety Report 12548321 (Version 13)
Quarter: 2021Q4

REPORT INFORMATION
  Report Type: Report from Study
  Country: GB (occurrence: None)
  Receive Date: 20160712
  Receipt Date: 20211119
  Transmission Date: 20220303
  Serious: Yes (Hospitalization)
  Sender: FDA-Public Use
  Company Number: GB-ROCHE-1788839

PATIENT
  Age: 69 Year
  Sex: Female
  Weight: 70.3 kg

DRUGS (20)
  1. RITUXIMAB [Suspect]
     Active Substance: RITUXIMAB
     Indication: Diffuse large B-cell lymphoma
     Dosage: DATE OF MOST RECENT DOSE OF RITUXIMAB PRIOR TO AE ONSET: 14/JUN/2016 AT 10:35,13/JUL/2016
     Route: 042
     Dates: start: 20160614, end: 20210521
  2. BENDAMUSTINE [Suspect]
     Active Substance: BENDAMUSTINE
     Indication: Diffuse large B-cell lymphoma
     Dosage: FREQUENCY AS PER PROTOCOL?DATE OF MOST RECENT DOSE OF BENDAMUSTINE PRIOR TO AE ONSET: 16/JUN/2016 AT
     Route: 042
     Dates: start: 20160615, end: 20210521
  3. DALTEPARIN [Concomitant]
     Active Substance: DALTEPARIN
     Indication: Thrombosis prophylaxis
     Dosage: 500 UNITS
     Dates: start: 20160524, end: 20160824
  4. CITALOPRAM [Concomitant]
     Active Substance: CITALOPRAM HYDROBROMIDE
     Indication: Depression
  5. ROPINIROLE [Concomitant]
     Active Substance: ROPINIROLE
     Indication: Restless legs syndrome
  6. ACETAMINOPHEN\CODEINE PHOSPHATE [Concomitant]
     Active Substance: ACETAMINOPHEN\CODEINE PHOSPHATE
     Indication: Pain
  7. LANSOPRAZOLE [Concomitant]
     Active Substance: LANSOPRAZOLE
     Dates: start: 20160524
  8. ONDANSETRON [Concomitant]
     Active Substance: ONDANSETRON
     Indication: Nausea
     Dates: start: 20160615, end: 20160617
  9. ONDANSETRON [Concomitant]
     Active Substance: ONDANSETRON
     Dates: start: 20160713, end: 20160713
  10. FILGRASTIM [Concomitant]
     Active Substance: FILGRASTIM
     Dates: start: 20160617, end: 20160622
  11. FILGRASTIM [Concomitant]
     Active Substance: FILGRASTIM
     Dates: start: 20160713, end: 20160719
  12. FILGRASTIM [Concomitant]
     Active Substance: FILGRASTIM
     Dates: start: 20160715, end: 20160721
  13. DEXAMETHASONE [Concomitant]
     Active Substance: DEXAMETHASONE
  14. METOCLOPRAMIDE HYDROCHLORIDE [Concomitant]
     Active Substance: METOCLOPRAMIDE HYDROCHLORIDE
     Indication: Nausea
     Dates: start: 20160620, end: 20160824
  15. ALLOPURINOL [Concomitant]
     Active Substance: ALLOPURINOL
     Indication: Tumour lysis syndrome
     Dates: start: 20160614, end: 20160628
  16. SULFAMETHOXAZOLE\TRIMETHOPRIM [Concomitant]
     Active Substance: SULFAMETHOXAZOLE\TRIMETHOPRIM
     Indication: Infection prophylaxis
     Dates: start: 20160615
  17. ACYCLOVIR [Concomitant]
     Active Substance: ACYCLOVIR
     Indication: Antiviral prophylaxis
     Dates: start: 20160615
  18. FLUCONAZOLE [Concomitant]
     Active Substance: FLUCONAZOLE
     Dates: start: 20160614
  19. ACETAMINOPHEN [Concomitant]
     Active Substance: ACETAMINOPHEN
     Indication: Pyrexia
     Dates: start: 20160614, end: 20160614
  20. ACETAMINOPHEN [Concomitant]
     Active Substance: ACETAMINOPHEN
     Dates: start: 20160713, end: 20160713

REACTIONS (3)
  - Acute kidney injury [Recovered/Resolved]
  - Lower respiratory tract infection [Recovered/Resolved]
  - Lower respiratory tract infection [Recovered/Resolved]

NARRATIVE: CASE EVENT DATE: 20160701
